FAERS Safety Report 25152334 (Version 1)
Quarter: 2025Q2

REPORT INFORMATION
  Report Type: Spontaneous
  Country: CN (occurrence: CN)
  Receive Date: 20250402
  Receipt Date: 20250402
  Transmission Date: 20250717
  Serious: Yes (Life-Threatening, Hospitalization, Other)
  Sender: CSL BEHRING
  Company Number: CN-BEH-2025200563

PATIENT
  Age: 45 Year
  Sex: Male
  Weight: 105 kg

DRUGS (1)
  1. ALBURX [Suspect]
     Active Substance: ALBUMIN HUMAN
     Indication: Hypoproteinaemia
     Dosage: 10 G, TID
     Route: 041
     Dates: start: 20250315, end: 20250315

REACTIONS (10)
  - Anaphylactic shock [Recovering/Resolving]
  - Hypotension [Recovering/Resolving]
  - Heart rate increased [Recovering/Resolving]
  - Respiratory rate increased [Recovering/Resolving]
  - Erythema [Recovering/Resolving]
  - Papule [Recovering/Resolving]
  - Hypotension [Recovering/Resolving]
  - Peripheral arterial occlusive disease [Recovering/Resolving]
  - Rash [Recovering/Resolving]
  - Coma [Unknown]

NARRATIVE: CASE EVENT DATE: 20250315
